FAERS Safety Report 6054029-0 (Version None)
Quarter: 2009Q1

REPORT INFORMATION
  Report Type: 
  Country: None (occurrence: None)
  Receive Date: 20090123
  Receipt Date: 20090123
  Transmission Date: 20090719
  Serious: Yes (Other)
  Sender: FDA-Public Use
  Company Number: None

PATIENT
  Sex: Female
  Weight: 59.8748 kg

DRUGS (1)
  1. MIRENA [Suspect]
     Dates: start: 20061101, end: 20090202

REACTIONS (7)
  - ACNE [None]
  - ASTHENIA [None]
  - CRYING [None]
  - DEPRESSION [None]
  - MOOD SWINGS [None]
  - QUALITY OF LIFE DECREASED [None]
  - SENSATION OF HEAVINESS [None]
